FAERS Safety Report 10530491 (Version 1)
Quarter: 2014Q4

REPORT INFORMATION
  Report Type: Spontaneous
  Country: US (occurrence: None)
  Receive Date: 20141020
  Receipt Date: 20141020
  Transmission Date: 20150528
  Serious: Yes (Other)
  Sender: FDA-Public Use
  Company Number: None

PATIENT
  Age: 20 Year
  Sex: Female
  Weight: 56.7 kg

DRUGS (1)
  1. ZOLOFT [Suspect]
     Active Substance: SERTRALINE HYDROCHLORIDE
     Indication: ANXIETY
     Dosage: 1 PILL; ONCE DAILY
     Route: 048

REACTIONS (5)
  - Condition aggravated [None]
  - Suicide attempt [None]
  - Anxiety [None]
  - Depression [None]
  - Panic attack [None]

NARRATIVE: CASE EVENT DATE: 20141017
